FAERS Safety Report 25238080 (Version 2)
Quarter: 2025Q2

REPORT INFORMATION
  Report Type: Spontaneous
  Country: ES (occurrence: ES)
  Receive Date: 20250425
  Receipt Date: 20250429
  Transmission Date: 20250717
  Serious: Yes (Other)
  Sender: Kenvue
  Company Number: ES-ELI_LILLY_AND_COMPANY-ES202503007002

PATIENT

DRUGS (6)
  1. LOPERAMIDE HYDROCHLORIDE [Suspect]
     Active Substance: LOPERAMIDE HYDROCHLORIDE
     Indication: Diarrhoea
     Route: 065
  2. ABEMACICLIB [Suspect]
     Active Substance: ABEMACICLIB
     Indication: Breast cancer
     Route: 048
     Dates: start: 202406
  3. ABEMACICLIB [Suspect]
     Active Substance: ABEMACICLIB
     Route: 048
  4. ABEMACICLIB [Suspect]
     Active Substance: ABEMACICLIB
     Route: 048
  5. ABEMACICLIB [Suspect]
     Active Substance: ABEMACICLIB
     Route: 048
  6. LETROZOLE [Concomitant]
     Active Substance: LETROZOLE
     Indication: Breast cancer
     Route: 065

REACTIONS (10)
  - Abdominal pain [Recovering/Resolving]
  - Diarrhoea [Recovered/Resolved]
  - Weight decreased [Recovering/Resolving]
  - Dehydration [Recovering/Resolving]
  - Dysphagia [Recovering/Resolving]
  - Toxicity to various agents [Unknown]
  - Quality of life decreased [Unknown]
  - Constipation [Recovered/Resolved]
  - Illness [Recovered/Resolved]
  - Decreased appetite [Unknown]
